FAERS Safety Report 8185509 (Version 8)
Quarter: 2018Q1

REPORT INFORMATION
  Report Type: Spontaneous
  Country: US (occurrence: US)
  Receive Date: 20111018
  Receipt Date: 20180130
  Transmission Date: 20180509
  Serious: Yes (Life-Threatening, Hospitalization, Other)
  Sender: FDA-Public Use
  Company Number: US-ASTRAZENECA-2011SE36649

PATIENT
  Age: 59 Year
  Sex: Male
  Weight: 73.9 kg

DRUGS (22)
  1. SYMBICORT [Suspect]
     Active Substance: BUDESONIDE\FORMOTEROL FUMARATE DIHYDRATE
     Indication: ASTHMA
     Dosage: 160/4.5, TWO PUFFS TWICE A DAY
     Route: 055
     Dates: start: 2007
  2. SYMBICORT [Suspect]
     Active Substance: BUDESONIDE\FORMOTEROL FUMARATE DIHYDRATE
     Indication: ASTHMA PROPHYLAXIS
     Dosage: 160/4.5, TWO PUFFS TWICE A DAY
     Route: 055
     Dates: end: 201311
  3. SYMBICORT [Suspect]
     Active Substance: BUDESONIDE\FORMOTEROL FUMARATE DIHYDRATE
     Indication: CHRONIC OBSTRUCTIVE PULMONARY DISEASE
     Dosage: 160/4.5 MCG, TWICE A DAY UNKNOWN
     Route: 055
  4. BESYLATE [Concomitant]
     Indication: HYPERTENSION
     Route: 048
  5. SYMBICORT [Suspect]
     Active Substance: BUDESONIDE\FORMOTEROL FUMARATE DIHYDRATE
     Indication: ASTHMA PROPHYLAXIS
     Dosage: 160/4.5, TWO PUFFS TWICE A DAY
     Route: 055
     Dates: start: 2007
  6. SYMBICORT [Suspect]
     Active Substance: BUDESONIDE\FORMOTEROL FUMARATE DIHYDRATE
     Indication: CHRONIC OBSTRUCTIVE PULMONARY DISEASE
     Dosage: 160/4.5, TWO PUFFS TWICE A DAY
     Route: 055
     Dates: start: 2007
  7. SYMBICORT [Suspect]
     Active Substance: BUDESONIDE\FORMOTEROL FUMARATE DIHYDRATE
     Indication: ASTHMA
     Dosage: 160/4.5 EITHER THREE TIMES DAILY, ONCE DAILY OR WITHOUT TAKING ANY AT ALL, UNKNOWN FREQUENCY UNKNOWN
     Route: 055
     Dates: start: 201404
  8. METFORMIN [Concomitant]
     Active Substance: METFORMIN HYDROCHLORIDE
     Indication: DIABETES MELLITUS
     Route: 048
  9. SYMBICORT [Suspect]
     Active Substance: BUDESONIDE\FORMOTEROL FUMARATE DIHYDRATE
     Indication: ASTHMA
     Dosage: 160/4.5, TWO PUFFS TWICE A DAY
     Route: 055
     Dates: end: 20140305
  10. DIABETES PILLS [Concomitant]
     Indication: DIABETES MELLITUS
     Dosage: 1.0DF UNKNOWN
  11. SYMBICORT [Suspect]
     Active Substance: BUDESONIDE\FORMOTEROL FUMARATE DIHYDRATE
     Indication: CHRONIC OBSTRUCTIVE PULMONARY DISEASE
     Dosage: 160/4.5, TWO PUFFS TWICE A DAY
     Route: 055
     Dates: end: 201311
  12. SYMBICORT [Suspect]
     Active Substance: BUDESONIDE\FORMOTEROL FUMARATE DIHYDRATE
     Indication: CHRONIC OBSTRUCTIVE PULMONARY DISEASE
     Dosage: 160/4.5, TWO PUFFS TWICE A DAY
     Route: 055
     Dates: end: 20140305
  13. SYMBICORT [Suspect]
     Active Substance: BUDESONIDE\FORMOTEROL FUMARATE DIHYDRATE
     Indication: ASTHMA PROPHYLAXIS
     Dosage: 160/4.5 EITHER THREE TIMES DAILY, ONCE DAILY OR WITHOUT TAKING ANY AT ALL, UNKNOWN FREQUENCY UNKNOWN
     Route: 055
     Dates: start: 201404
  14. SYMBICORT [Suspect]
     Active Substance: BUDESONIDE\FORMOTEROL FUMARATE DIHYDRATE
     Indication: ASTHMA
     Dosage: 160/4.5 MCG, TWICE A DAY UNKNOWN
     Route: 055
  15. VENTOLIN [Concomitant]
     Active Substance: ALBUTEROL SULFATE
  16. DULERA [Concomitant]
     Active Substance: FORMOTEROL FUMARATE DIHYDRATE\MOMETASONE FUROATE
  17. SYMBICORT [Suspect]
     Active Substance: BUDESONIDE\FORMOTEROL FUMARATE DIHYDRATE
     Indication: ASTHMA PROPHYLAXIS
     Dosage: 160/4.5, TWO PUFFS TWICE A DAY
     Route: 055
     Dates: end: 20140305
  18. METFORMIN [Concomitant]
     Active Substance: METFORMIN HYDROCHLORIDE
     Indication: DIABETES MELLITUS
     Route: 048
  19. SYMBICORT [Suspect]
     Active Substance: BUDESONIDE\FORMOTEROL FUMARATE DIHYDRATE
     Indication: CHRONIC OBSTRUCTIVE PULMONARY DISEASE
     Dosage: 160/4.5 EITHER THREE TIMES DAILY, ONCE DAILY OR WITHOUT TAKING ANY AT ALL, UNKNOWN FREQUENCY UNKNOWN
     Route: 055
     Dates: start: 201404
  20. SYMBICORT [Suspect]
     Active Substance: BUDESONIDE\FORMOTEROL FUMARATE DIHYDRATE
     Indication: ASTHMA PROPHYLAXIS
     Dosage: 160/4.5 MCG, TWICE A DAY UNKNOWN
     Route: 055
  21. SYMBICORT [Suspect]
     Active Substance: BUDESONIDE\FORMOTEROL FUMARATE DIHYDRATE
     Indication: ASTHMA
     Dosage: 160/4.5, TWO PUFFS TWICE A DAY
     Route: 055
     Dates: end: 201311
  22. PROAIR HFA [Concomitant]
     Active Substance: ALBUTEROL SULFATE

REACTIONS (16)
  - Intentional product misuse [Unknown]
  - Head injury [Unknown]
  - Loss of consciousness [Unknown]
  - Fall [Unknown]
  - Joint injury [Unknown]
  - Seasonal allergy [Unknown]
  - Limb injury [Not Recovered/Not Resolved]
  - Road traffic accident [Unknown]
  - Nasopharyngitis [Unknown]
  - Intentional product use issue [Not Recovered/Not Resolved]
  - Drug dose omission [Not Recovered/Not Resolved]
  - Ligament sprain [Unknown]
  - Asthma [Recovered/Resolved]
  - Rotator cuff syndrome [Unknown]
  - Back injury [Unknown]
  - Glucose tolerance impaired [Unknown]

NARRATIVE: CASE EVENT DATE: 2010
